FAERS Safety Report 7235115-6 (Version None)
Quarter: 2011Q1

REPORT INFORMATION
  Report Type: 
  Country: None (occurrence: None)
  Receive Date: 20110114
  Receipt Date: 20110114
  Transmission Date: 20110831
  Serious: No
  Sender: FDA-Public Use
  Company Number: None

PATIENT
  Age: 85 Year
  Sex: Male

DRUGS (1)
  1. HEPARIN SODIUM 1,000 UNITS IN DEXTROSE 5% [Suspect]
     Indication: THROMBOSIS PROPHYLAXIS
     Dates: start: 20101128, end: 20101130

REACTIONS (1)
  - HEPARIN-INDUCED THROMBOCYTOPENIA [None]
